FAERS Safety Report 6508483-8 (Version None)
Quarter: 2009Q4

REPORT INFORMATION
  Report Type: 
  Country: None (occurrence: None)
  Receive Date: 20091221
  Receipt Date: 20081126
  Transmission Date: 20100525
  Serious: No
  Sender: FDA-Public Use
  Company Number: US-ASTRAZENECA-2008UW26565

PATIENT
  Age: 63 Year
  Sex: Female

DRUGS (2)
  1. CRESTOR [Suspect]
     Route: 048
     Dates: start: 20080201, end: 20080101
  2. CRESTOR [Suspect]
     Route: 048
     Dates: start: 20080101, end: 20080101

REACTIONS (1)
  - MUSCLE SPASMS [None]
